FAERS Safety Report 20929985 (Version 3)
Quarter: 2024Q4

REPORT INFORMATION
  Report Type: Report from Study
  Country: DE (occurrence: DE)
  Receive Date: 20220608
  Receipt Date: 20241210
  Transmission Date: 20250115
  Serious: Yes (Hospitalization, Other)
  Sender: NOVARTIS
  Company Number: DE-NOVARTISPH-NVSC2021DE297472

PATIENT
  Sex: Female

DRUGS (12)
  1. COSENTYX [Suspect]
     Active Substance: SECUKINUMAB
     Indication: Product used for unknown indication
     Dosage: 150 MG
     Route: 065
     Dates: start: 20180813, end: 20180813
  2. COSENTYX [Suspect]
     Active Substance: SECUKINUMAB
     Dosage: 50 MG, QD (1 TIME PER WEEK)
     Route: 065
     Dates: start: 20200606, end: 20210831
  3. ERELZI [Suspect]
     Active Substance: ETANERCEPT-SZZS
     Indication: Psoriatic arthropathy
     Dosage: 50 MG, QD (1 TIME PER WEEK)
     Route: 065
     Dates: start: 20200606, end: 20210831
  4. ERELZI [Suspect]
     Active Substance: ETANERCEPT-SZZS
     Dosage: 50 MG
     Route: 065
     Dates: start: 20211015, end: 20220215
  5. ETORICOXIB [Suspect]
     Active Substance: ETORICOXIB
     Indication: Product used for unknown indication
     Dosage: 60 MG
     Route: 065
     Dates: start: 20180627, end: 20181015
  6. ETORICOXIB [Suspect]
     Active Substance: ETORICOXIB
     Dosage: 90 MG
     Route: 065
     Dates: start: 20181220, end: 20190215
  7. ETORICOXIB [Suspect]
     Active Substance: ETORICOXIB
     Dosage: 90 MG
     Route: 065
     Dates: start: 20191120, end: 20191217
  8. ETORICOXIB [Suspect]
     Active Substance: ETORICOXIB
     Dosage: 60 MG
     Route: 065
     Dates: start: 20200515, end: 20200520
  9. CIMZIA [Suspect]
     Active Substance: CERTOLIZUMAB PEGOL
     Indication: Product used for unknown indication
     Dosage: 200 MG
     Route: 065
     Dates: start: 20190806, end: 20191010
  10. CIMZIA [Suspect]
     Active Substance: CERTOLIZUMAB PEGOL
     Dosage: 200 MG
     Route: 065
     Dates: start: 20191217, end: 20200526
  11. METHOTREXATE SODIUM [Suspect]
     Active Substance: METHOTREXATE SODIUM
     Indication: Product used for unknown indication
     Dosage: 10 MG
     Route: 065
     Dates: start: 20190425, end: 20190731
  12. CELECOXIB [Suspect]
     Active Substance: CELECOXIB
     Indication: Product used for unknown indication
     Dosage: 200 MG
     Route: 065
     Dates: start: 20220321

REACTIONS (9)
  - Benign breast neoplasm [Recovering/Resolving]
  - Osteoarthritis [Unknown]
  - Psoriatic arthropathy [Unknown]
  - Chondrocalcinosis [Unknown]
  - Abdominal pain [Unknown]
  - Hepatitis B [Unknown]
  - Back pain [Unknown]
  - Hepatic enzyme increased [Unknown]
  - Sensory level abnormal [Unknown]

NARRATIVE: CASE EVENT DATE: 20180804
